FAERS Safety Report 4819382-1 (Version None)
Quarter: 2005Q4

REPORT INFORMATION
  Report Type: 
  Country: None (occurrence: None)
  Receive Date: 20051031
  Receipt Date: 20050801
  Transmission Date: 20060501
  Serious: No
  Sender: FDA-Public Use
  Company Number: 2005PV000729

PATIENT
  Age: 49 Year
  Sex: Female
  Weight: 63.9572 kg

DRUGS (1)
  1. SYMLIN [Suspect]
     Indication: DIABETES MELLITUS INSULIN-DEPENDENT
     Dosage: 60 MCG;TID;SC
     Route: 058
     Dates: start: 20050704

REACTIONS (1)
  - ERUCTATION [None]
